FAERS Safety Report 6156781-2 (Version None)
Quarter: 2009Q2

REPORT INFORMATION
  Report Type: 
  Country: None (occurrence: None)
  Receive Date: 20090416
  Receipt Date: 20090408
  Transmission Date: 20091009
  Serious: Yes (Other)
  Sender: FDA-Public Use
  Company Number: PHHY2009BR13525

PATIENT
  Age: 48 Year
  Sex: Female
  Weight: 97 kg

DRUGS (6)
  1. DIOVAN HCT [Suspect]
     Dosage: 320/25 MG
     Route: 048
     Dates: start: 20090101
  2. TEGRETOL [Concomitant]
     Indication: DIABETIC NEUROPATHY
     Dosage: 1 DF, QD AT NIGHT
     Route: 048
     Dates: start: 20070101
  3. HUMULIN N [Concomitant]
     Indication: DIABETES MELLITUS
     Dosage: 30 IU IN MORNING AND 30 IU AT NIGHT
     Route: 058
     Dates: start: 19940101
  4. ROXFLAN [Concomitant]
     Indication: FLUID RETENTION
     Dosage: 1 DF DAILY
     Route: 048
  5. ATENSINA [Concomitant]
     Indication: CHEST PAIN
     Dosage: 1 TABLET DAILY
     Route: 048
  6. GLUCOFORMIN [Concomitant]
     Indication: DIABETES MELLITUS
     Dosage: 3 TABLETS DAILY
     Route: 048

REACTIONS (3)
  - DIABETES MELLITUS [None]
  - EYE DISORDER [None]
  - LASER THERAPY [None]
